FAERS Safety Report 21761241 (Version 1)
Quarter: 2022Q4

REPORT INFORMATION
  Report Type: Spontaneous
  Country: US (occurrence: None)
  Receive Date: 20221221
  Receipt Date: 20221221
  Transmission Date: 20230113
  Serious: No
  Sender: FDA-Public Use
  Company Number: None

PATIENT
  Sex: 0

DRUGS (2)
  1. MICRONOR [Suspect]
     Active Substance: NORETHINDRONE
  2. MIRENA [Suspect]
     Active Substance: LEVONORGESTREL

REACTIONS (4)
  - Hypertrichosis [None]
  - Drug intolerance [None]
  - Migraine [None]
  - Polycystic ovaries [None]
